FAERS Safety Report 8829856 (Version 1)
Quarter: 2012Q4

REPORT INFORMATION
  Report Type: Spontaneous
  Country: US (occurrence: None)
  Receive Date: 20121005
  Receipt Date: 20121005
  Transmission Date: 20130627
  Serious: Yes (Other)
  Sender: FDA-Public Use
  Company Number: None

PATIENT
  Age: 67 Year
  Sex: Female
  Weight: 62.14 kg

DRUGS (1)
  1. FEMARA [Suspect]
     Indication: BREAST DUCTAL CARCINOMA
     Route: 048
     Dates: start: 20090601, end: 20120920

REACTIONS (1)
  - Blood parathyroid hormone increased [None]
